FAERS Safety Report 18427135 (Version 2)
Quarter: 2022Q4

REPORT INFORMATION
  Report Type: Spontaneous
  Country: US (occurrence: US)
  Receive Date: 20201026
  Receipt Date: 20221007
  Transmission Date: 20230112
  Serious: Yes (Other)
  Sender: FDA-Public Use
  Company Number: US-PFIZER INC-2020410154

PATIENT
  Age: 68 Year
  Sex: Female

DRUGS (1)
  1. AROMASIN [Suspect]
     Active Substance: EXEMESTANE
     Dosage: 25 MG

REACTIONS (6)
  - Foot fracture [Unknown]
  - Fall [Unknown]
  - Dyspnoea [Unknown]
  - Agitation [Unknown]
  - Breast mass [Unknown]
  - Bone pain [Unknown]
